FAERS Safety Report 13633758 (Version 1)
Quarter: 2017Q2

REPORT INFORMATION
  Report Type: Spontaneous
  Country: US (occurrence: US)
  Receive Date: 20170531
  Receipt Date: 20170531
  Transmission Date: 20170830
  Serious: No
  Sender: FDA-Public Use
  Company Number: US-ASTELLAS-1572094

PATIENT
  Sex: Female

DRUGS (6)
  1. ALBUTEROL. [Concomitant]
     Active Substance: ALBUTEROL
  2. TARCEVA [Suspect]
     Active Substance: ERLOTINIB HYDROCHLORIDE
     Route: 048
     Dates: start: 20150501
  3. ZANTAC [Concomitant]
     Active Substance: RANITIDINE HYDROCHLORIDE
  4. FLOVENT [Concomitant]
     Active Substance: FLUTICASONE PROPIONATE
  5. LEVOTHYROXINE. [Concomitant]
     Active Substance: LEVOTHYROXINE
  6. TARCEVA [Suspect]
     Active Substance: ERLOTINIB HYDROCHLORIDE
     Indication: LUNG NEOPLASM MALIGNANT
     Route: 048
     Dates: start: 20150422

REACTIONS (22)
  - Dry skin [Unknown]
  - Pain [Unknown]
  - Eyelids pruritus [Unknown]
  - Myalgia [Unknown]
  - Rash [Unknown]
  - Skin fissures [Unknown]
  - Alopecia [Unknown]
  - Memory impairment [Unknown]
  - Skin discolouration [Unknown]
  - Amnesia [Unknown]
  - Muscle twitching [Unknown]
  - Drooling [Unknown]
  - Pruritus [Unknown]
  - Erythema [Unknown]
  - Diarrhoea [Unknown]
  - Dry mouth [Unknown]
  - Hair texture abnormal [Unknown]
  - Skin reaction [Unknown]
  - Muscle spasms [Unknown]
  - Ocular hyperaemia [Unknown]
  - Insomnia [Unknown]
  - Skin exfoliation [Unknown]
